FAERS Safety Report 7587036-7 (Version None)
Quarter: 2011Q3

REPORT INFORMATION
  Report Type: 
  Country: None (occurrence: None)
  Receive Date: 20110701
  Receipt Date: 20110622
  Transmission Date: 20111222
  Serious: Yes (Hospitalization)
  Sender: FDA-Public Use
  Company Number: FR-ASTRAZENECA-2011SE19898

PATIENT
  Age: 50 Year
  Sex: Male
  Weight: 62 kg

DRUGS (7)
  1. ASPIRIN [Concomitant]
  2. EZETIMIBE [Concomitant]
  3. SOTALOL HCL [Concomitant]
     Indication: CORONARY ARTERY INSUFFICIENCY
     Dates: start: 19960101
  4. CRESTOR [Suspect]
     Indication: HYPERCHOLESTEROLAEMIA
     Route: 048
  5. LESCOL [Suspect]
  6. CRESTOR [Suspect]
     Route: 048
  7. LESCOL [Suspect]

REACTIONS (3)
  - THROMBOCYTOPENIA [None]
  - LEUKOPENIA [None]
  - NEUTROPENIA [None]
